FAERS Safety Report 5196389-9 (Version None)
Quarter: 2006Q4

REPORT INFORMATION
  Report Type: 
  Country: None (occurrence: None)
  Receive Date: 20061222
  Receipt Date: 20061212
  Transmission Date: 20070319
  Serious: Yes (Life-Threatening, Hospitalization, Disabling)
  Sender: FDA-Public Use
  Company Number: 200612AGG00541

PATIENT
  Age: 67 Year
  Sex: Female

DRUGS (6)
  1. AGGRASTAT [Suspect]
     Dosage: 7.5 ML, IV (ICH 042)
     Dates: start: 20061028, end: 20061028
  2. ALDACTONE (CANRENOATE POTASSIUM) [Concomitant]
  3. MONO-CEDOCARD (ISOSORBIDE MONONITRATE) [Concomitant]
  4. ASPIRIN [Concomitant]
  5. CLOPIDOGREL BISULFATE [Concomitant]
  6. THERAPIES UNSPECIFIED [Concomitant]

REACTIONS (8)
  - ATRIAL FIBRILLATION [None]
  - CARDIAC FAILURE [None]
  - CEREBROVASCULAR ACCIDENT [None]
  - HAEMORRHAGE [None]
  - RENAL FAILURE [None]
  - RESPIRATORY FAILURE [None]
  - SEPSIS [None]
  - VENTRICULAR TACHYCARDIA [None]
